FAERS Safety Report 8563482-X (Version None)
Quarter: 2012Q3

REPORT INFORMATION
  Report Type: 
  Country: None (occurrence: None)
  Receive Date: 20120802
  Receipt Date: 20120725
  Transmission Date: 20120928
  Serious: Yes (Other)
  Sender: FDA-Public Use
  Company Number: US-SANOFI-AVENTIS-2012SA053630

PATIENT
  Age: 76 Year
  Sex: Female

DRUGS (4)
  1. PLAVIX [Suspect]
  2. TRACLEER [Suspect]
     Indication: PULMONARY ARTERIAL HYPERTENSION
     Route: 048
  3. REMODULIN [Concomitant]
  4. EPOPROSTENOL SODIUM [Concomitant]

REACTIONS (5)
  - VASCULAR OCCLUSION [None]
  - ABDOMINAL PAIN UPPER [None]
  - HYPERTENSION [None]
  - HYPERHIDROSIS [None]
  - DYSPNOEA [None]
